FAERS Safety Report 9631104 (Version 2)
Quarter: 2013Q4

REPORT INFORMATION
  Report Type: Spontaneous
  Country: CO (occurrence: None)
  Receive Date: 20131011
  Receipt Date: 20131101
  Transmission Date: 20140711
  Serious: Yes (Other)
  Sender: FDA-Public Use
  Company Number: 2013P1019895

PATIENT
  Age: 4 Year
  Sex: Female

DRUGS (1)
  1. CEFTRIAXONE [Suspect]
     Indication: SINUSITIS

REACTIONS (3)
  - Cholecystitis [None]
  - Cholangitis [None]
  - Bile duct stone [None]
